FAERS Safety Report 5922593-5 (Version None)
Quarter: 2008Q4

REPORT INFORMATION
  Report Type: 
  Country: None (occurrence: None)
  Receive Date: 20081017
  Receipt Date: 20081014
  Transmission Date: 20090506
  Serious: Yes (Death)
  Sender: FDA-Public Use
  Company Number: PHHY2008BR24597

PATIENT
  Age: 71 Year
  Sex: Male

DRUGS (1)
  1. COMTAN [Suspect]
     Indication: DEPRESSION
     Dosage: 1 DF, QD
     Route: 048
     Dates: start: 19980101

REACTIONS (1)
  - COMPLETED SUICIDE [None]
